FAERS Safety Report 6887410-8 (Version None)
Quarter: 2010Q3

REPORT INFORMATION
  Report Type: 
  Country: None (occurrence: None)
  Receive Date: 20100730
  Receipt Date: 20100317
  Transmission Date: 20110219
  Serious: No
  Sender: FDA-Public Use
  Company Number: A0850679A

PATIENT
  Sex: Female

DRUGS (3)
  1. IMITREX [Suspect]
     Indication: MIGRAINE
     Dosage: 25MG AS REQUIRED
     Route: 048
     Dates: start: 19950101
  2. CRESTOR [Concomitant]
  3. CELEBREX [Concomitant]

REACTIONS (2)
  - ABDOMINAL DISCOMFORT [None]
  - INCORRECT STORAGE OF DRUG [None]
